FAERS Safety Report 6107417-8 (Version None)
Quarter: 2009Q1

REPORT INFORMATION
  Report Type: 
  Country: None (occurrence: None)
  Receive Date: 20090302
  Receipt Date: 20081124
  Transmission Date: 20090719
  Serious: Yes (Hospitalization)
  Sender: FDA-Public Use
  Company Number: FLCT20080202

PATIENT
  Age: 79 Year
  Sex: Male
  Weight: 79.8331 kg

DRUGS (5)
  1. FLECTOR [Suspect]
     Indication: NECK PAIN
     Dosage: 1 PLASTER, 1 IN ONCE, TOPICAL; 1 PLASTER, 2 IN1  D, TOPICAL
     Route: 061
     Dates: start: 20081002, end: 20081114
  2. FLECTOR [Suspect]
     Indication: NECK PAIN
     Dosage: 1 PLASTER, 1 IN ONCE, TOPICAL; 1 PLASTER, 2 IN1  D, TOPICAL
     Route: 061
     Dates: start: 20081119, end: 20081119
  3. LISINOPRIL [Concomitant]
  4. TOPROL-XL [Concomitant]
  5. HYDROCHLOROTHIAZIDE [Concomitant]

REACTIONS (1)
  - DIZZINESS [None]
